FAERS Safety Report 5597965-1 (Version None)
Quarter: 2008Q1

REPORT INFORMATION
  Report Type: 
  Country: None (occurrence: None)
  Receive Date: 20080116
  Receipt Date: 20080109
  Transmission Date: 20080703
  Serious: Yes (Hospitalization)
  Sender: FDA-Public Use
  Company Number: 2008SP000580

PATIENT
  Age: 36 Year
  Sex: Male
  Weight: 70 kg

DRUGS (1)
  1. DIPROSPAN [Suspect]
     Indication: AMYLOIDOSIS
     Dosage: 1 ML;QD;IM
     Route: 030
     Dates: start: 20080104, end: 20080104

REACTIONS (2)
  - APHASIA [None]
  - DIZZINESS [None]
